FAERS Safety Report 6761699-8 (Version None)
Quarter: 2010Q2

REPORT INFORMATION
  Report Type: 
  Country: None (occurrence: None)
  Receive Date: 20100511
  Receipt Date: 20100426
  Transmission Date: 20101027
  Serious: Yes (Other)
  Sender: FDA-Public Use
  Company Number: 2010022291

PATIENT
  Sex: Male

DRUGS (3)
  1. PRIVIGEN [Suspect]
     Indication: MULTIFOCAL MOTOR NEUROPATHY
     Dosage: 35 G QD, MINIMAL RATE 27 ML/H; MAXIMAL RATE 231 ML/H, INTRAVENOUS; INTRAVENOUS
     Route: 042
     Dates: start: 20091116, end: 20091120
  2. PRIVIGEN [Suspect]
  3. PRIVIGEN [Suspect]

REACTIONS (2)
  - GOUT [None]
  - MALAISE [None]
